FAERS Safety Report 10334445 (Version 1)
Quarter: 2014Q3

REPORT INFORMATION
  Report Type: Spontaneous
  Country: IT (occurrence: IT)
  Receive Date: 20140723
  Receipt Date: 20140723
  Transmission Date: 20150326
  Serious: Yes (Hospitalization)
  Sender: FDA-Public Use
  Company Number: IT-JNJFOC-20140710887

PATIENT
  Age: 42 Year
  Sex: Male
  Weight: 85 kg

DRUGS (4)
  1. RISPERDAL [Suspect]
     Active Substance: RISPERIDONE
     Indication: SCHIZOPHRENIA
     Route: 048
  2. RISPERDAL [Suspect]
     Active Substance: RISPERIDONE
     Indication: SCHIZOPHRENIA
     Route: 048
     Dates: start: 20140201, end: 20140613
  3. CARBOLITHIUM [Concomitant]
     Active Substance: LITHIUM CARBONATE
     Indication: PRODUCT USED FOR UNKNOWN INDICATION
     Route: 048
     Dates: start: 20140201, end: 20140613
  4. ZYPADHERA [Suspect]
     Active Substance: OLANZAPINE PAMOATE
     Indication: SCHIZOPHRENIA
     Route: 030
     Dates: start: 20140201, end: 20140422

REACTIONS (5)
  - Aphasia [Recovered/Resolved]
  - Facial paresis [Recovering/Resolving]
  - Hemiparesis [Unknown]
  - Transient ischaemic attack [Recovered/Resolved with Sequelae]
  - Dysphagia [Recovered/Resolved]

NARRATIVE: CASE EVENT DATE: 20140504
